FAERS Safety Report 12201521 (Version 1)
Quarter: 2016Q1

REPORT INFORMATION
  Report Type: Spontaneous
  Country: US (occurrence: US)
  Receive Date: 20160322
  Receipt Date: 20160322
  Transmission Date: 20160526
  Serious: No
  Sender: FDA-Public Use
  Company Number: US-SA-2015SA163679

PATIENT
  Age: 31 Year
  Sex: Female

DRUGS (1)
  1. NASACORT ALLERGY 24HR [Suspect]
     Active Substance: TRIAMCINOLONE ACETONIDE
     Indication: HYPERSENSITIVITY
     Dosage: START DATE 3-4 WEEKS AGO?END DATE 2 WEEKS AGO
     Route: 065

REACTIONS (1)
  - Urticaria [Recovered/Resolved with Sequelae]
